FAERS Safety Report 24421811 (Version 1)
Quarter: 2024Q4

REPORT INFORMATION
  Report Type: Spontaneous
  Country: US (occurrence: US)
  Receive Date: 20241010
  Receipt Date: 20241010
  Transmission Date: 20250115
  Serious: No
  Sender: ABBVIE
  Company Number: US-ABBVIE-5956781

PATIENT
  Sex: Female

DRUGS (1)
  1. ARMOUR THYROID [Suspect]
     Active Substance: THYROID, PORCINE
     Indication: Product used for unknown indication
     Route: 065

REACTIONS (6)
  - Thyroid disorder [Unknown]
  - Multiple drug hypersensitivity [Unknown]
  - Hyperthyroidism [Unknown]
  - Weight increased [Unknown]
  - Atrial fibrillation [Unknown]
  - Tri-iodothyronine abnormal [Unknown]
